FAERS Safety Report 6626449-4 (Version None)
Quarter: 2010Q1

REPORT INFORMATION
  Report Type: 
  Country: None (occurrence: None)
  Receive Date: 20100310
  Receipt Date: 20100129
  Transmission Date: 20100710
  Serious: No
  Sender: FDA-Public Use
  Company Number: US-ABBOTT-10P-163-0618106-00

PATIENT
  Sex: Female
  Weight: 95.34 kg

DRUGS (3)
  1. LUPRON DEPOT [Suspect]
     Indication: ENDOMETRIOSIS
     Dates: start: 20070101
  2. PROTONIX [Concomitant]
     Indication: GASTROOESOPHAGEAL REFLUX DISEASE
  3. LEXAPRO [Concomitant]
     Indication: ANXIETY

REACTIONS (3)
  - DRUG EFFECT DECREASED [None]
  - HOT FLUSH [None]
  - PAIN [None]
